FAERS Safety Report 7772433-7 (Version None)
Quarter: 2011Q3

REPORT INFORMATION
  Report Type: 
  Country: None (occurrence: None)
  Receive Date: 20110922
  Receipt Date: 20110913
  Transmission Date: 20111222
  Serious: Yes (Other)
  Sender: FDA-Public Use
  Company Number: PHHY2011US81791

PATIENT
  Age: 9 Year
  Sex: Female

DRUGS (5)
  1. FLUTICASONE PROPIONATE [Interacting]
     Dosage: 220 MCG/ACTUATION
     Dates: start: 20090630
  2. FLUCONAZOLE [Interacting]
     Dosage: 100 MG, UNK
     Route: 048
     Dates: start: 20090721, end: 20090726
  3. FLUTICASONE PROPIONATE [Interacting]
     Indication: ASTHMA
     Dosage: 110 MCG/ACTUATION
  4. PREDNISONE [Interacting]
     Dosage: 1 MG, BID
     Route: 048
     Dates: end: 20091229
  5. PREDNISONE [Suspect]
     Dosage: 60 MG, UNK
     Route: 048

REACTIONS (14)
  - CUSHING'S SYNDROME [None]
  - FACE OEDEMA [None]
  - THIRST [None]
  - CONTUSION [None]
  - VULVOVAGINAL CANDIDIASIS [None]
  - BLOOD GLUCOSE DECREASED [None]
  - CYSTIC FIBROSIS RELATED DIABETES [None]
  - ADRENAL INSUFFICIENCY [None]
  - HIRSUTISM [None]
  - BLOOD CORTISOL DECREASED [None]
  - DRUG INTERACTION [None]
  - POLYURIA [None]
  - BLOOD CORTICOTROPHIN ABNORMAL [None]
  - WEIGHT INCREASED [None]
